FAERS Safety Report 8404543-5 (Version None)
Quarter: 2012Q2

REPORT INFORMATION
  Report Type: 
  Country: None (occurrence: None)
  Receive Date: 20120601
  Receipt Date: 20120523
  Transmission Date: 20120825
  Serious: Yes (Other)
  Sender: FDA-Public Use
  Company Number: FR-ASTRAZENECA-2012SE28903

PATIENT
  Age: 16908 Day
  Sex: Female

DRUGS (9)
  1. ESCITALOPRAM [Concomitant]
     Route: 048
  2. TENORMIN [Suspect]
     Indication: MYOCARDIAL INFARCTION
     Dosage: DAILY
     Route: 048
     Dates: start: 20110101, end: 20120426
  3. IKOREL [Concomitant]
     Route: 048
  4. ATORVASTATIN [Concomitant]
     Route: 048
  5. AMLODIPINE BESYLATE [Concomitant]
     Route: 048
  6. CORVASAL [Concomitant]
     Route: 048
  7. PLAVIX [Concomitant]
     Route: 048
  8. XANAX [Concomitant]
     Route: 048
  9. ASPIRIN [Concomitant]
     Route: 048

REACTIONS (2)
  - PRINZMETAL ANGINA [None]
  - TACHYCARDIA [None]
